FAERS Safety Report 8521572-1 (Version None)
Quarter: 2012Q3

REPORT INFORMATION
  Report Type: 
  Country: None (occurrence: None)
  Receive Date: 20120719
  Receipt Date: 20120713
  Transmission Date: 20120928
  Serious: Yes (Other)
  Sender: FDA-Public Use
  Company Number: PHHY2012BR060980

PATIENT
  Sex: Female
  Weight: 36 kg

DRUGS (2)
  1. TEGRETOL [Suspect]
     Dosage: UNK UKN, UNK
     Dates: start: 20120712, end: 20120715
  2. TEGRETOL [Suspect]
     Indication: ARRHYTHMIA
     Dosage: 1 DF, QD
     Route: 048

REACTIONS (8)
  - IMMUNODEFICIENCY [None]
  - HEADACHE [None]
  - BREAST PAIN [None]
  - INCREASED APPETITE [None]
  - PYREXIA [None]
  - FURUNCLE [None]
  - LYMPHADENITIS BACTERIAL [None]
  - SOMNOLENCE [None]
